FAERS Safety Report 8342865-7 (Version None)
Quarter: 2012Q2

REPORT INFORMATION
  Report Type: 
  Country: None (occurrence: None)
  Receive Date: 20120504
  Receipt Date: 20120504
  Transmission Date: 20120825
  Serious: Yes (Hospitalization)
  Sender: FDA-Public Use
  Company Number: None

PATIENT
  Age: 66 Year
  Sex: Female
  Weight: 61 kg

DRUGS (17)
  1. PROCTOFOAM [Concomitant]
  2. FOLIC ACID [Concomitant]
  3. SYNTHROID [Concomitant]
  4. SULFAMETHOXAZOLE AND TRIMETHOPRIM DOUBLE STRENGTH [Concomitant]
  5. NOXAFIL [Concomitant]
  6. PEMETREXED [Concomitant]
  7. CREON [Concomitant]
  8. OMEPRAZOLE [Concomitant]
  9. POSACONAZOLE [Concomitant]
  10. PREDNISONE TAB [Concomitant]
  11. CARBOPLATIN [Concomitant]
  12. VITAMIN B COMPLEX CAP [Concomitant]
  13. DEXAMETHASONE SODIUM PHOSPHATE [Concomitant]
  14. LEVAQUIN [Concomitant]
  15. BEVACIZUMAB [Suspect]
     Indication: LUNG NEOPLASM MALIGNANT
     Dosage: REFER TO BOX #10
  16. AUQUADEKS SOFT GEL [Concomitant]
  17. VITAMIN D [Concomitant]

REACTIONS (2)
  - PERIRECTAL ABSCESS [None]
  - ANAL FISTULA [None]
